FAERS Safety Report 5829627-7 (Version None)
Quarter: 2008Q3

REPORT INFORMATION
  Report Type: 
  Country: None (occurrence: None)
  Receive Date: 20080731
  Receipt Date: 20080728
  Transmission Date: 20090109
  Serious: Yes (Hospitalization)
  Sender: FDA-Public Use
  Company Number: AU-PFIZER INC-2008062868

PATIENT
  Age: 19 Year
  Sex: Male
  Weight: 70 kg

DRUGS (6)
  1. SERTRALINE [Suspect]
     Dosage: DAILY DOSE:.6GRAM
     Route: 048
  2. DILTIAZEM HCL [Suspect]
     Dosage: DAILY DOSE:3.6GRAM
     Route: 048
  3. ATENOLOL [Suspect]
     Dosage: DAILY DOSE:.5GRAM
     Route: 048
  4. CLOZAPINE [Suspect]
     Dosage: DAILY DOSE:3GRAM
     Route: 048
  5. VENLAFAXINE HCL [Suspect]
     Dosage: DAILY DOSE:4.2GRAM
     Route: 048
  6. GALENIC /HYDROCHLOROTHIAZIDE/IRBESARTAN/ [Suspect]
     Dosage: TEXT:0.125-1.5 G
     Route: 048

REACTIONS (6)
  - BRADYPNOEA [None]
  - HYPOTENSION [None]
  - HYPOTHERMIA [None]
  - OVERDOSE [None]
  - SEDATION [None]
  - SINUS BRADYCARDIA [None]
